FAERS Safety Report 8256399-1 (Version None)
Quarter: 2012Q2

REPORT INFORMATION
  Report Type: 
  Country: None (occurrence: None)
  Receive Date: 20120402
  Receipt Date: 20120402
  Transmission Date: 20120825
  Serious: Yes (Hospitalization)
  Sender: FDA-Public Use
  Company Number: None

PATIENT
  Sex: Female
  Weight: 107 kg

DRUGS (13)
  1. HYDROMORPHONE HCL [Concomitant]
  2. LOVAZA [Concomitant]
  3. CYMBALTA [Concomitant]
  4. OMEPRAZOLE [Concomitant]
  5. EXCEDRIN (MIGRAINE) [Concomitant]
  6. LIPITOR [Concomitant]
  7. TIMOLOL MALEATE [Concomitant]
  8. QUINAPRIL HCL [Concomitant]
  9. RITUXIMAB (MOAB C2B8 ANTI CD20, CHIMERIC) [Suspect]
     Dosage: 56 MG
  10. TRICOR [Concomitant]
  11. OXYCONTIN [Concomitant]
  12. ALPRAZOLAM [Concomitant]
  13. GLIMEPIRIDE [Concomitant]

REACTIONS (4)
  - CHEST PAIN [None]
  - NO THERAPEUTIC RESPONSE [None]
  - ABDOMINAL PAIN [None]
  - CHILLS [None]
